FAERS Safety Report 7323831-7 (Version None)
Quarter: 2011Q1

REPORT INFORMATION
  Report Type: 
  Country: None (occurrence: None)
  Receive Date: 20110301
  Receipt Date: 20110221
  Transmission Date: 20110831
  Serious: Yes (Hospitalization)
  Sender: FDA-Public Use
  Company Number: A0897766A

PATIENT
  Sex: Male
  Weight: 106.8 kg

DRUGS (8)
  1. GLUCOPHAGE [Concomitant]
  2. DIABETA [Concomitant]
  3. AVANDIA [Suspect]
     Indication: DIABETES MELLITUS
     Dosage: 8MG PER DAY
     Route: 048
     Dates: start: 19990806, end: 20090101
  4. METOPROLOL [Concomitant]
  5. INSULIN [Concomitant]
  6. LIPITOR [Concomitant]
  7. ALTACE [Concomitant]
  8. GLIPIZIDE [Concomitant]

REACTIONS (1)
  - MYOCARDIAL INFARCTION [None]
